FAERS Safety Report 5087095-X (Version None)
Quarter: 2006Q3

REPORT INFORMATION
  Report Type: 
  Country: None (occurrence: None)
  Receive Date: 20060821
  Receipt Date: 20060801
  Transmission Date: 20061208
  Serious: Yes (Death, Hospitalization)
  Sender: FDA-Public Use
  Company Number: TR200603002184

PATIENT
  Age: 61 Year
  Sex: Male
  Weight: 70 kg

DRUGS (5)
  1. GEMZAR [Suspect]
     Indication: NON-SMALL CELL LUNG CANCER STAGE IV
     Dosage: 1800 MG, OTHER, INTRAVENOUS
     Route: 042
     Dates: start: 20040107
  2. CISPLATIN [Concomitant]
  3. ANTIEMETICS AND ANTINAUSEANTS [Concomitant]
  4. ANTIHISTAMINES [Concomitant]
  5. CORTICOSTEROIDS [Concomitant]

REACTIONS (7)
  - BONE MARROW TOXICITY [None]
  - DYSPNOEA [None]
  - HAEMOGLOBIN DECREASED [None]
  - LOSS OF CONSCIOUSNESS [None]
  - NEUTROPHIL PERCENTAGE DECREASED [None]
  - PLATELET COUNT DECREASED [None]
  - WHITE BLOOD CELL COUNT DECREASED [None]
